FAERS Safety Report 21483221 (Version 3)
Quarter: 2022Q4

REPORT INFORMATION
  Report Type: Spontaneous
  Country: US (occurrence: US)
  Receive Date: 20221020
  Receipt Date: 20221229
  Transmission Date: 20230112
  Serious: Yes (Other)
  Sender: FDA-Public Use
  Company Number: US-JNJFOC-20221025687

PATIENT
  Age: 63 Year
  Sex: Female

DRUGS (5)
  1. ELMIRON [Suspect]
     Active Substance: PENTOSAN POLYSULFATE SODIUM
     Indication: Cystitis interstitial
     Dosage: 1 TO 4 TABLETS PER DAY
     Route: 048
     Dates: start: 20100101, end: 20181018
  2. ELMIRON [Suspect]
     Active Substance: PENTOSAN POLYSULFATE SODIUM
     Route: 048
     Dates: end: 201901
  3. METOPROLOL [Concomitant]
     Active Substance: METOPROLOL
     Indication: Blood pressure measurement
     Dates: start: 20200101
  4. LISINOPRIL [Concomitant]
     Active Substance: LISINOPRIL
     Indication: Blood cholesterol
     Dates: start: 20200101
  5. PRAVASTATIN [Concomitant]
     Active Substance: PRAVASTATIN
     Indication: Blood cholesterol
     Dates: start: 20200101

REACTIONS (6)
  - Maculopathy [Unknown]
  - Retinal injury [Unknown]
  - Vitreous detachment [Unknown]
  - Neovascular age-related macular degeneration [Unknown]
  - Treatment noncompliance [Unknown]
  - Off label use [Unknown]

NARRATIVE: CASE EVENT DATE: 20100101
